FAERS Safety Report 9842213 (Version 2)
Quarter: 2014Q1

REPORT INFORMATION
  Report Type: Spontaneous
  Country: AR (occurrence: AR)
  Receive Date: 20140124
  Receipt Date: 20140303
  Transmission Date: 20141002
  Serious: Yes (Hospitalization, Other)
  Sender: FDA-Public Use
  Company Number: PHHY2014AR007547

PATIENT
  Sex: Female

DRUGS (1)
  1. SANDIMMUN [Suspect]
     Indication: APLASIA
     Dates: start: 201312

REACTIONS (3)
  - Blood urine present [Recovered/Resolved]
  - Urinary tract infection [Unknown]
  - Thrombocytopenia [Unknown]
